FAERS Safety Report 15353877 (Version 2)
Quarter: 2018Q3

REPORT INFORMATION
  Report Type: Spontaneous
  Country: JP (occurrence: JP)
  Receive Date: 20180905
  Receipt Date: 20180920
  Transmission Date: 20181010
  Serious: Yes (Hospitalization, Other)
  Sender: FDA-Public Use
  Company Number: JP-TAKEDA-2018TJP022526

PATIENT
  Age: 8 Decade
  Sex: Male

DRUGS (1)
  1. INISYNC COMBINATION TABLETS [Suspect]
     Active Substance: ALOGLIPTIN BENZOATE\METFORMIN HYDROCHLORIDE
     Indication: TYPE 2 DIABETES MELLITUS
     Dosage: 1 DF, UNK
     Route: 048
     Dates: end: 20180723

REACTIONS (2)
  - Gastric cancer [Unknown]
  - Heat illness [Unknown]

NARRATIVE: CASE EVENT DATE: 20180830
